FAERS Safety Report 7647645-3 (Version None)
Quarter: 2011Q3

REPORT INFORMATION
  Report Type: 
  Country: None (occurrence: None)
  Receive Date: 20110801
  Receipt Date: 20110801
  Transmission Date: 20111222
  Serious: Yes (Life-Threatening, Hospitalization)
  Sender: FDA-Public Use
  Company Number: None

PATIENT
  Age: 50 Year
  Sex: Male

DRUGS (7)
  1. NICOTINE [Concomitant]
     Route: 062
  2. FLUOXETINE [Concomitant]
     Indication: DEPRESSION
     Dosage: 20 MG
     Route: 048
     Dates: start: 20110503, end: 20110505
  3. RISPERIDONE [Concomitant]
     Route: 048
  4. OLANZAPINE [Concomitant]
     Route: 048
  5. HYDROCHLOROTHIAZIDE [Suspect]
     Indication: HYPERTENSION
     Dosage: 25 MG
     Route: 048
     Dates: start: 20110421, end: 20110505
  6. CYCLOBENZAPRINE [Concomitant]
     Route: 048
  7. LISINOPRIL [Concomitant]
     Route: 048

REACTIONS (11)
  - INAPPROPRIATE ANTIDIURETIC HORMONE SECRETION [None]
  - LABORATORY TEST INTERFERENCE [None]
  - THIRST [None]
  - POLYDIPSIA [None]
  - POSTICTAL STATE [None]
  - BLOOD CHLORIDE DECREASED [None]
  - ASPARTATE AMINOTRANSFERASE INCREASED [None]
  - BLOOD BILIRUBIN INCREASED [None]
  - DIZZINESS [None]
  - ALANINE AMINOTRANSFERASE INCREASED [None]
  - GRAND MAL CONVULSION [None]
